FAERS Safety Report 15178809 (Version 1)
Quarter: 2018Q3

REPORT INFORMATION
  Report Type: Spontaneous
  Country: CA (occurrence: CA)
  Receive Date: 20180722
  Receipt Date: 20180722
  Transmission Date: 20181010
  Serious: Yes (Hospitalization)
  Sender: FDA-Public Use
  Company Number: CA-B.I. PHARMACEUTICALS,INC./RIDGEFIELD-2018-BI-037066

PATIENT
  Age: 74 Year
  Sex: Male

DRUGS (4)
  1. COVERSYL PLUS [Concomitant]
     Active Substance: INDAPAMIDE\PERINDOPRIL
     Indication: PRODUCT USED FOR UNKNOWN INDICATION
     Route: 065
  2. JANUMET [Concomitant]
     Active Substance: METFORMIN HYDROCHLORIDE\SITAGLIPTIN PHOSPHATE
     Indication: PRODUCT USED FOR UNKNOWN INDICATION
     Route: 065
  3. JARDIANCE [Suspect]
     Active Substance: EMPAGLIFLOZIN
     Indication: TYPE 2 DIABETES MELLITUS
     Route: 048
  4. ROSUVASTATIN. [Concomitant]
     Active Substance: ROSUVASTATIN
     Indication: PRODUCT USED FOR UNKNOWN INDICATION
     Route: 065

REACTIONS (15)
  - Decreased appetite [Recovering/Resolving]
  - Diabetes mellitus inadequate control [Recovering/Resolving]
  - Asthenia [Recovering/Resolving]
  - Vomiting [Recovering/Resolving]
  - Weight decreased [Recovering/Resolving]
  - Blood creatinine increased [Recovering/Resolving]
  - Lid sulcus deepened [Recovering/Resolving]
  - Blood glucose increased [Recovering/Resolving]
  - Delirium [Recovering/Resolving]
  - Jaundice [Recovering/Resolving]
  - Blood urea increased [Recovering/Resolving]
  - Lipase increased [Recovering/Resolving]
  - Acidosis [Recovering/Resolving]
  - Ketonuria [Recovering/Resolving]
  - Liver function test decreased [Recovering/Resolving]
